FAERS Safety Report 8340185-8 (Version None)
Quarter: 2012Q2

REPORT INFORMATION
  Report Type: 
  Country: None (occurrence: None)
  Receive Date: 20120507
  Receipt Date: 20120426
  Transmission Date: 20120825
  Serious: Yes (Hospitalization)
  Sender: FDA-Public Use
  Company Number: US-BRISTOL-MYERS SQUIBB COMPANY-16496135

PATIENT
  Age: 75 Year
  Sex: Male

DRUGS (4)
  1. ARAVA [Concomitant]
  2. ABATACEPT SUBQ INJECTION 125MG/ML [Suspect]
     Indication: RHEUMATOID ARTHRITIS
     Dosage: INJ:4
     Route: 058
     Dates: start: 20111201, end: 20120101
  3. INSULIN [Concomitant]
  4. COUMADIN [Suspect]

REACTIONS (1)
  - PLEURAL EFFUSION [None]
